FAERS Safety Report 8463908-6 (Version None)
Quarter: 2012Q2

REPORT INFORMATION
  Report Type: 
  Country: None (occurrence: None)
  Receive Date: 20120625
  Receipt Date: 20120614
  Transmission Date: 20120825
  Serious: Yes (Hospitalization, Other)
  Sender: FDA-Public Use
  Company Number: US-ASTRAZENECA-2012SE40329

PATIENT
  Age: 51 Year
  Sex: Male
  Weight: 84.4 kg

DRUGS (5)
  1. LISINOPRIL [Suspect]
     Indication: HYPERTENSION
     Route: 048
  2. METOPROLOL TARTRATE [Concomitant]
     Route: 048
  3. PLAVIX [Concomitant]
     Route: 048
  4. ASPIRIN [Concomitant]
     Route: 048
  5. ZOCOR [Concomitant]
     Route: 048

REACTIONS (17)
  - ACUTE CORONARY SYNDROME [None]
  - HYPERLIPIDAEMIA [None]
  - EJECTION FRACTION DECREASED [None]
  - ANGER [None]
  - PERSONALITY DISORDER [None]
  - MYOCARDIAL INFARCTION [None]
  - CHEST DISCOMFORT [None]
  - LIGAMENT SPRAIN [None]
  - BUNDLE BRANCH BLOCK RIGHT [None]
  - CORONARY ARTERY DISEASE [None]
  - GOUTY ARTHRITIS [None]
  - GASTROOESOPHAGEAL REFLUX DISEASE [None]
  - ANGINA PECTORIS [None]
  - VENTRICULAR EXTRASYSTOLES [None]
  - HYPERTENSION [None]
  - ANXIETY [None]
  - MYOCARDIAL ISCHAEMIA [None]
